FAERS Safety Report 10254726 (Version 1)
Quarter: 2014Q2

REPORT INFORMATION
  Report Type: Spontaneous
  Country: US (occurrence: None)
  Receive Date: 20140620
  Receipt Date: 20140620
  Transmission Date: 20141212
  Serious: No
  Sender: FDA-Public Use
  Company Number: None

PATIENT
  Age: 42 Year
  Sex: Female
  Weight: 74.84 kg

DRUGS (2)
  1. ABILIFY [Suspect]
     Indication: DEPRESSION
     Route: 048
  2. ABILIFY [Suspect]
     Indication: PANIC DISORDER
     Route: 048

REACTIONS (7)
  - Essential tremor [None]
  - Memory impairment [None]
  - Dyskinesia [None]
  - Muscle spasms [None]
  - Bruxism [None]
  - Insomnia [None]
  - Tardive dyskinesia [None]
